FAERS Safety Report 21478192 (Version 3)
Quarter: 2023Q1

REPORT INFORMATION
  Report Type: Report from Study
  Country: JP (occurrence: JP)
  Receive Date: 20221019
  Receipt Date: 20230308
  Transmission Date: 20230417
  Serious: Yes (Hospitalization, Other)
  Sender: FDA-Public Use
  Company Number: JP-GSKPMS-217893-0022-028

PATIENT

DRUGS (8)
  1. SOTROVIMAB [Suspect]
     Active Substance: SOTROVIMAB
     Indication: COVID-19
     Dosage: 500 MG, 200 ML/H (100ML/30MIN)
     Route: 041
     Dates: start: 20220918
  2. FLUTICASONE FUROATE\VILANTEROL TRIFENATATE [Concomitant]
     Active Substance: FLUTICASONE FUROATE\VILANTEROL TRIFENATATE
     Dosage: 100 UG, QD, SINCE BEFORE ADMISSION AND CONTINUED DURING HOSPITALISATION
     Route: 055
  3. NEXIUM [Concomitant]
     Active Substance: ESOMEPRAZOLE MAGNESIUM
     Dosage: 100 MG, QD, AFTER BREAKFAST, SINCE BEFORE ADMISSION AND CONTINUED DURING HOSPITALISATION
  4. TAMSULOSIN HYDROCHLORIDE [Concomitant]
     Active Substance: TAMSULOSIN HYDROCHLORIDE
     Dosage: UNK
  5. MONTELUKAST SODIUM [Concomitant]
     Active Substance: MONTELUKAST SODIUM
     Dosage: 10 MG, QD, AFTER BREAKFAST, SINCE BEFORE ADMISSION AND CONTINUED DURING HOSPITALISATION
  6. AMBROXOL HYDROCHLORIDE [Concomitant]
     Active Substance: AMBROXOL HYDROCHLORIDE
     Dosage: UNK
  7. MUCOSOLVAN L TABLET [Concomitant]
     Dosage: 45 MG, QD, AFTER BREAKFAST, SINCE BEFORE ADMISSION AND CONTINUED DURING HOSPITALISATION
  8. TAMSULOSIN HYDROCHLORIDE OD TABLET [Concomitant]
     Dosage: 0.2 MG, QD, AFTER BREAKFAST, SINCE BEFORE ADMISSION AND CONTINUED DURING HOSPITALISATION

REACTIONS (1)
  - Cholangitis [Recovering/Resolving]

NARRATIVE: CASE EVENT DATE: 20220928
